FAERS Safety Report 8793445 (Version 2)
Quarter: 2012Q4

REPORT INFORMATION
  Report Type: 
  Country: US (occurrence: US)
  Receive Date: 20120918
  Receipt Date: 20120926
  Transmission Date: 20130627
  Serious: No
  Sender: FDA-Public Use
  Company Number: US-009507513-1209USA000802

PATIENT
  Age: 42 Year
  Sex: Male
  Weight: 76.19 kg

DRUGS (3)
  1. PEGINTRON [Suspect]
     Dosage: 120 Microgram, qw
     Route: 058
  2. REBETOL [Suspect]
     Dosage: UNK mg, UNK
     Route: 048
  3. TELAPREVIR [Concomitant]
     Dosage: UNK
     Route: 048

REACTIONS (5)
  - Influenza like illness [Unknown]
  - Pruritus [Unknown]
  - Rash [Unknown]
  - Anorectal discomfort [Unknown]
  - Headache [Unknown]
